FAERS Safety Report 8303971-6 (Version None)
Quarter: 2012Q2

REPORT INFORMATION
  Report Type: 
  Country: None (occurrence: None)
  Receive Date: 20120423
  Receipt Date: 20120413
  Transmission Date: 20120825
  Serious: Yes (Hospitalization)
  Sender: FDA-Public Use
  Company Number: US-ASTELLAS-2012US002938

PATIENT

DRUGS (2)
  1. VESICARE [Suspect]
     Indication: PRODUCT USED FOR UNKNOWN INDICATION
     Dosage: 5 MG, UID/QD
     Route: 048
  2. VESICARE [Suspect]
     Dosage: 10 MG, UID/QD
     Route: 048

REACTIONS (6)
  - THERAPEUTIC RESPONSE UNEXPECTED [None]
  - SPINAL FRACTURE [None]
  - PROSTATIC OPERATION [None]
  - BLADDER SPASM [None]
  - CHROMATURIA [None]
  - URINARY INCONTINENCE [None]
